FAERS Safety Report 12965796 (Version 1)
Quarter: 2016Q4

REPORT INFORMATION
  Report Type: Spontaneous
  Country: GB (occurrence: GB)
  Receive Date: 20161122
  Receipt Date: 20161122
  Transmission Date: 20170207
  Serious: Yes (Life-Threatening, Hospitalization, Disabling, Other)
  Sender: FDA-Public Use
  Company Number: GB-BAXALTA-2016BLT008397

PATIENT
  Age: 41 Year
  Sex: Female
  Weight: 67 kg

DRUGS (20)
  1. NEUROMIN                           /00176001/ [Concomitant]
  2. NOVORAPID [Concomitant]
     Active Substance: INSULIN ASPART
  3. ATORVASTATIN [Concomitant]
     Active Substance: ATORVASTATIN
  4. RANITIDINE. [Concomitant]
     Active Substance: RANITIDINE
  5. NORIDAY                            /00022701/ [Concomitant]
  6. FLUCONAZOLE. [Concomitant]
     Active Substance: FLUCONAZOLE
  7. LANTUS [Concomitant]
     Active Substance: INSULIN GLARGINE
  8. SUBCUVIA [Suspect]
     Active Substance: HUMAN IMMUNOGLOBULIN G
     Indication: PRODUCT USED FOR UNKNOWN INDICATION
     Dosage: 41.6 G, 2X A WEEK
     Route: 058
  9. NITROFURANTOIN. [Concomitant]
     Active Substance: NITROFURANTOIN
  10. UBIQUINONE [Concomitant]
     Active Substance: UBIDECARENONE
  11. CETIRIZINE [Concomitant]
     Active Substance: CETIRIZINE HYDROCHLORIDE
  12. PARACETAMOL [Concomitant]
     Active Substance: ACETAMINOPHEN
  13. KIOVIG [Suspect]
     Active Substance: HUMAN IMMUNOGLOBULIN G
     Dosage: UNK
     Dates: start: 20161109
  14. KIOVIG [Suspect]
     Active Substance: HUMAN IMMUNOGLOBULIN G
     Dosage: 25 G, EVERY 4 WK
     Route: 042
  15. TERBINAFINE. [Concomitant]
     Active Substance: TERBINAFINE
  16. OXYNORM [Concomitant]
     Active Substance: OXYCODONE HYDROCHLORIDE
  17. CEPHALEXIN                         /00145501/ [Concomitant]
     Active Substance: CEPHALEXIN
  18. METFORMIN [Concomitant]
     Active Substance: METFORMIN HYDROCHLORIDE
  19. KIOVIG [Suspect]
     Active Substance: HUMAN IMMUNOGLOBULIN G
     Indication: HYPOGAMMAGLOBULINAEMIA
     Dosage: 25 G, EVERY 4 WK
     Route: 042
     Dates: start: 20161109, end: 20161109
  20. MOVICOL [Concomitant]
     Active Substance: POLYETHYLENE GLYCOL 3350\POTASSIUM CHLORIDE\SODIUM BICARBONATE\SODIUM CHLORIDE

REACTIONS (3)
  - Sepsis [Recovering/Resolving]
  - Catheter site infection [Unknown]
  - Acute myocardial infarction [Recovered/Resolved]

NARRATIVE: CASE EVENT DATE: 20061111
